FAERS Safety Report 15764680 (Version 1)
Quarter: 2018Q4

REPORT INFORMATION
  Report Type: Spontaneous
  Country: US (occurrence: US)
  Receive Date: 20181207
  Receipt Date: 20181207
  Transmission Date: 20190205
  Serious: Yes (Other)
  Sender: FDA-Public Use
  Company Number: None

PATIENT
  Age: 60 Year
  Sex: Male
  Weight: 55.6 kg

DRUGS (9)
  1. HEPARIN [Suspect]
     Active Substance: HEPARIN SODIUM
     Indication: THROMBOSIS PROPHYLAXIS
     Dosage: ?          OTHER DOSE:1000 UNITS/HR;OTHER FREQUENCY:CONT;?
     Route: 042
     Dates: start: 20181103
  2. ODIUM BICARBONATE [Concomitant]
  3. PIPERACILLIN/TAZOBACTAM [Concomitant]
     Active Substance: PIPERACILLIN SODIUM\TAZOBACTAM SODIUM
  4. NOREPINEPHRIN [Concomitant]
  5. PHENYLEPHRINE [Concomitant]
     Active Substance: PHENYLEPHRINE\PHENYLEPHRINE HYDROCHLORIDE
  6. VASOPRESSINE [Concomitant]
  7. PANTOPRAZOLE [Concomitant]
     Active Substance: PANTOPRAZOLE
  8. GIAPREZA [Suspect]
     Active Substance: ANGIOTENSIN II
     Indication: HYPOTENSION
     Dosage: ?          OTHER DOSE:30 NG/KG/MIN;OTHER FREQUENCY:CONT;?
     Route: 042
     Dates: start: 20181102
  9. MIDAZOLAM [Concomitant]
     Active Substance: MIDAZOLAM HYDROCHLORIDE

REACTIONS (3)
  - Laboratory test interference [None]
  - Activated partial thromboplastin time prolonged [None]
  - Coagulation test abnormal [None]

NARRATIVE: CASE EVENT DATE: 20181111
